FAERS Safety Report 5850256-3 (Version None)
Quarter: 2008Q3

REPORT INFORMATION
  Report Type: 
  Country: None (occurrence: None)
  Receive Date: 20080819
  Receipt Date: 20080812
  Transmission Date: 20090109
  Serious: Yes (Hospitalization, Other)
  Sender: FDA-Public Use
  Company Number: PHEH2005US09866

PATIENT

DRUGS (25)
  1. ZOMETA [Suspect]
     Indication: MULTIPLE MYELOMA
     Dosage: 4MG Q4WK
     Route: 042
     Dates: start: 20050118, end: 20050814
  2. CYCLOSPORINE [Suspect]
     Indication: STEM CELL TRANSPLANT
  3. DECADRON SRC [Concomitant]
  4. THALIDOMIDE [Concomitant]
     Indication: MULTIPLE MYELOMA
     Dosage: DAILY
  5. LISINOPRIL [Concomitant]
     Indication: HYPERTENSION
     Dosage: 10 MG, QD
  6. GLUCOTROL [Concomitant]
     Indication: DIABETES MELLITUS
  7. AVANDIA [Concomitant]
     Indication: DIABETES MELLITUS
     Dosage: 4 MG, QD
  8. ASPIRIN [Concomitant]
     Dosage: DAILY
  9. ZANAFLEX [Concomitant]
     Dosage: DAILY
  10. DOXYCYCLINE [Concomitant]
     Dosage: 200 MG, UNK
  11. CYMBALTA [Concomitant]
     Indication: NEUROPATHY PERIPHERAL
     Dosage: DAILY
  12. DEXAMETHASONE TAB [Concomitant]
     Indication: MULTIPLE MYELOMA
     Dosage: LOW DOSE DAILY
  13. PROTONIX [Concomitant]
  14. ZETIA [Concomitant]
     Indication: HYPERLIPIDAEMIA
     Dosage: 10 MG, UNK
     Route: 048
  15. CELLCEPT [Concomitant]
  16. ACYCLOVIR [Concomitant]
  17. NEORAL [Concomitant]
  18. GLYBURIDE [Concomitant]
  19. GLUCERNA ^ABBOTT^ [Concomitant]
  20. OXYCODONE HCL [Concomitant]
  21. FOLIC ACID [Concomitant]
  22. LEVOFLOXACIN [Concomitant]
  23. ECONAZOLE NITRATE [Concomitant]
  24. COUMADIN [Concomitant]
  25. GABAPENTIN [Concomitant]

REACTIONS (15)
  - DEHYDRATION [None]
  - GINGIVAL ERYTHEMA [None]
  - HYPERLIPIDAEMIA [None]
  - HYPOPHOSPHATAEMIA [None]
  - ILL-DEFINED DISORDER [None]
  - METASTASES TO BONE [None]
  - MYALGIA [None]
  - NAUSEA [None]
  - NEUROPATHY PERIPHERAL [None]
  - OEDEMA MOUTH [None]
  - OSTEONECROSIS [None]
  - PAIN [None]
  - PAIN IN JAW [None]
  - SKULL X-RAY ABNORMAL [None]
  - VOMITING [None]
